FAERS Safety Report 16961907 (Version 1)
Quarter: 2019Q4

REPORT INFORMATION
  Report Type: Report from Study
  Country: US (occurrence: US)
  Receive Date: 20191025
  Receipt Date: 20191025
  Transmission Date: 20200122
  Serious: Yes (Death, Hospitalization)
  Sender: FDA-Public Use
  Company Number: US-PUMA BIOTECHNOLOGY, LTD.-2019US009051

PATIENT

DRUGS (2)
  1. NERLYNX [Suspect]
     Active Substance: NERATINIB
     Indication: BREAST CANCER FEMALE
     Dosage: 5 TABLETS (200 MG), DAILY
     Route: 048
     Dates: start: 20190717, end: 2019
  2. NERLYNX [Suspect]
     Active Substance: NERATINIB
     Dosage: 5 TABLETS (200 MG), DAILY
     Route: 048
     Dates: start: 201908, end: 2019

REACTIONS (6)
  - Fatigue [Unknown]
  - Death [Fatal]
  - Memory impairment [Unknown]
  - Prescribed underdose [Unknown]
  - Aphasia [Unknown]
  - Diarrhoea [Unknown]

NARRATIVE: CASE EVENT DATE: 2019
